FAERS Safety Report 7976445-X (Version None)
Quarter: 2011Q4

REPORT INFORMATION
  Report Type: 
  Country: None (occurrence: None)
  Receive Date: 20111213
  Receipt Date: 20111021
  Transmission Date: 20120403
  Serious: No
  Sender: FDA-Public Use
  Company Number: US-AMGEN-USASP2011054652

PATIENT
  Age: 52 Year
  Sex: Female

DRUGS (3)
  1. METHOTREXATE [Concomitant]
     Dates: start: 20100401
  2. PLAQUENIL [Concomitant]
     Dosage: 1 MG, QD
     Dates: start: 20110401
  3. ENBREL [Suspect]
     Indication: RHEUMATOID ARTHRITIS
     Dosage: 50 MG, QWK
     Dates: start: 20110512

REACTIONS (2)
  - ABDOMINAL PAIN [None]
  - ABDOMINAL DISCOMFORT [None]
